FAERS Safety Report 8551248 (Version 2)
Quarter: 2013Q2

REPORT INFORMATION
  Report Type: Spontaneous
  Country: US (occurrence: None)
  Receive Date: 20120327
  Receipt Date: 20120709
  Transmission Date: 20140414
  Serious: Yes (Hospitalization)
  Sender: FDA-Public Use
  Company Number: PHHY2011US29926

PATIENT
  Age: 54 Year
  Sex: Female

DRUGS (12)
  1. GLEEVEC [Suspect]
     Indication: CHRONIC MYELOID LEUKAEMIA
     Dates: start: 20100819
  2. GLEEVEC [Suspect]
     Indication: CHROMOSOME ANALYSIS ABNORMAL
     Dates: start: 20100819
  3. REGLAN [Concomitant]
  4. DILAUDID [Concomitant]
  5. LOVENOX [Concomitant]
  6. LEVAQUIN [Concomitant]
  7. TENORMIN [Concomitant]
  8. PROTONIX [Concomitant]
  9. TYLENOL (PARACETAMOL) [Concomitant]
  10. AMBIEN [Concomitant]
  11. LORTAB [Concomitant]
  12. ZOFRAN [Concomitant]

REACTIONS (12)
  - ILEITIS [None]
  - DIARRHOEA [None]
  - HYPERCOAGULATION [None]
  - HYPOACUSIS [None]
  - DYSPNOEA [None]
  - ARTHRALGIA [None]
  - COUGH [None]
  - Inflammatory bowel disease [None]
  - ABDOMINAL PAIN [None]
  - Crohn^s disease [None]
  - Regurgitation [None]
  - Malaise [None]
